FAERS Safety Report 8203071-X (Version None)
Quarter: 2012Q1

REPORT INFORMATION
  Report Type: 
  Country: None (occurrence: None)
  Receive Date: 20120312
  Receipt Date: 20120306
  Transmission Date: 20120608
  Serious: Yes (Death, Hospitalization, Other)
  Sender: FDA-Public Use
  Company Number: FR-ASTRAZENECA-2011SE77718

PATIENT
  Age: 19954 Day
  Sex: Male

DRUGS (5)
  1. DIPRIVAN [Concomitant]
     Indication: ANAESTHESIA
     Route: 042
     Dates: start: 20110727, end: 20110727
  2. BIOCALYPTOL [Suspect]
     Route: 048
     Dates: start: 20110420
  3. TENORETIC 100 [Suspect]
     Indication: HYPERTENSION
     Dosage: 50/12.5 MG, DAILY
     Route: 048
     Dates: start: 20110401
  4. CELOCURINE [Suspect]
     Indication: ANAESTHESIA
     Dosage: ONCE/SINGLE ADMINISTRATION
     Route: 042
     Dates: start: 20110727, end: 20110727
  5. SUFENTANIL CITRATE [Concomitant]
     Indication: ANAESTHESIA
     Route: 042
     Dates: start: 20110727, end: 20110727

REACTIONS (1)
  - ANAPHYLACTIC SHOCK [None]
